FAERS Safety Report 11707581 (Version 1)
Quarter: 2015Q4

REPORT INFORMATION
  Report Type: Spontaneous
  Country: US (occurrence: US)
  Receive Date: 20151104
  Receipt Date: 20151104
  Transmission Date: 20160304
  Serious: No
  Sender: FDA-Public Use
  Company Number: US-ELI_LILLY_AND_COMPANY-US201103003541

PATIENT
  Age: 69 Year
  Sex: Female

DRUGS (2)
  1. FORTEO [Suspect]
     Active Substance: TERIPARATIDE
     Dosage: UNK
     Dates: start: 201106
  2. FORTEO [Suspect]
     Active Substance: TERIPARATIDE
     Dosage: UNK, UNKNOWN
     Route: 065
     Dates: end: 201104

REACTIONS (8)
  - Heart rate increased [Unknown]
  - Bone pain [Unknown]
  - Pain [Unknown]
  - Dizziness [Unknown]
  - Constipation [Unknown]
  - Asthenia [Unknown]
  - Agitation [Unknown]
  - Insomnia [Unknown]
